FAERS Safety Report 12059529 (Version 1)
Quarter: 2016Q1

REPORT INFORMATION
  Report Type: Other
  Country: DE (occurrence: DE)
  Receive Date: 20160210
  Receipt Date: 20160210
  Transmission Date: 20160526
  Serious: Yes (Other)
  Sender: FDA-Public Use
  Company Number: DE-MYLANLABS-2016M1004612

PATIENT

DRUGS (5)
  1. FOLIO JODFREI [Concomitant]
     Indication: PROPHYLAXIS OF NEURAL TUBE DEFECT
     Dosage: UNK (0.4 [MG/D ])
     Route: 064
  2. PANTOPRAZOLE [Suspect]
     Active Substance: PANTOPRAZOLE SODIUM
     Indication: GASTROOESOPHAGEAL REFLUX DISEASE
     Dosage: UNK (60 [MG/D ]/ FOR A FEW DAYS 60 MG/D THAN 40 MG/D)
     Route: 064
     Dates: start: 20130216, end: 20130922
  3. ULCOGANT [Concomitant]
     Active Substance: SUCRALFATE
     Indication: GASTROOESOPHAGEAL REFLUX DISEASE
     Dosage: 1 G, TID (3 [G/D ])
     Route: 064
     Dates: start: 20130208, end: 20130213
  4. ESOMEPRAZOLE [Suspect]
     Active Substance: ESOMEPRAZOLE
     Indication: GASTROOESOPHAGEAL REFLUX DISEASE
     Dosage: UNK (80 [MG/D ]/ UNTIL WEEK 6: 80 MG/D, AFTER WEEK 6: 40 MG/D)
     Route: 064
     Dates: start: 20121212, end: 20130215
  5. GAVISCON                           /06182501/ [Concomitant]
     Indication: GASTROOESOPHAGEAL REFLUX DISEASE
     Dosage: UNK (1 TO 3 TIMES PER DAY IF REQUIRED)
     Route: 064
     Dates: start: 20121212, end: 20130922

REACTIONS (2)
  - Vitiligo [Not Recovered/Not Resolved]
  - Foetal exposure during pregnancy [Unknown]
